FAERS Safety Report 4869597-1 (Version None)
Quarter: 2005Q4

REPORT INFORMATION
  Report Type: 
  Country: None (occurrence: None)
  Receive Date: 20051227
  Receipt Date: 20051212
  Transmission Date: 20060501
  Serious: No
  Sender: FDA-Public Use
  Company Number: 2005-135711-NL

PATIENT
  Sex: Female

DRUGS (4)
  1. DESOGESTREL AND ETHINYL ESTRADIOL [Suspect]
     Dosage: DF
  2. TRIPHASIL-28 [Suspect]
  3. ALESSE [Suspect]
  4. LEVOTHYROXINE SODIUM [Concomitant]

REACTIONS (2)
  - BLOOD URINE PRESENT [None]
  - HEPATIC NEOPLASM [None]
